FAERS Safety Report 16719196 (Version 2)
Quarter: 2020Q4

REPORT INFORMATION
  Report Type: Report from Study
  Country: US (occurrence: US)
  Receive Date: 20190820
  Receipt Date: 20201204
  Transmission Date: 20210113
  Serious: Yes (Other)
  Sender: FDA-Public Use
  Company Number: US-ENDO PHARMACEUTICALS INC-2019-107261

PATIENT
  Age: 61 Year
  Sex: Male
  Weight: 88.44 kg

DRUGS (3)
  1. PREDNISONE. [Suspect]
     Active Substance: PREDNISONE
     Indication: CROHN^S DISEASE
     Dosage: 80 MG, UNKNOWN
     Route: 042
  2. OPANA [Suspect]
     Active Substance: OXYMORPHONE HYDROCHLORIDE
     Indication: CROHN^S DISEASE
     Dosage: UNK UNKNOWN, UNKNOWN
     Route: 065
  3. HUMIRA [Suspect]
     Active Substance: ADALIMUMAB
     Indication: CROHN^S DISEASE
     Dosage: 40 MG, 1 IN 2 WK
     Route: 058
     Dates: start: 201808

REACTIONS (26)
  - Renal failure [Recovered/Resolved]
  - Gastrointestinal mucosa hyperaemia [Recovering/Resolving]
  - Hand fracture [Unknown]
  - Fall [Unknown]
  - Injection site pain [Not Recovered/Not Resolved]
  - Vessel puncture site pain [Unknown]
  - Dizziness [Unknown]
  - Adverse drug reaction [Unknown]
  - Gastrointestinal disorder [Unknown]
  - Urinary retention [Recovered/Resolved]
  - Dyspepsia [Unknown]
  - Hypotension [Unknown]
  - Crohn^s disease [Unknown]
  - Dental prosthesis placement [Unknown]
  - Illness [Unknown]
  - Decreased appetite [Unknown]
  - Loss of consciousness [Unknown]
  - Vomiting [Recovering/Resolving]
  - Nail injury [Unknown]
  - Gastrointestinal inflammation [Recovering/Resolving]
  - Weight decreased [Not Recovered/Not Resolved]
  - Anxiety [Recovering/Resolving]
  - Feeling hot [Unknown]
  - Dehydration [Recovered/Resolved]
  - Off label use [Unknown]
  - Fatigue [Unknown]

NARRATIVE: CASE EVENT DATE: 201907
